FAERS Safety Report 9590640 (Version 1)
Quarter: 2013Q4

REPORT INFORMATION
  Report Type: Spontaneous
  Country: US (occurrence: US)
  Receive Date: 20131003
  Receipt Date: 20131003
  Transmission Date: 20140711
  Serious: No
  Sender: FDA-Public Use
  Company Number: US-AMGEN-USASP2012078373

PATIENT
  Age: 53 Year
  Sex: Female
  Weight: 59.41 kg

DRUGS (6)
  1. ENBREL [Suspect]
     Indication: PSORIATIC ARTHROPATHY
     Dosage: 50 MG, 2 TIMES/WK
     Route: 058
  2. ENBREL [Suspect]
     Indication: PSORIASIS
  3. SYNTHROID [Concomitant]
     Dosage: 25 MG, UNK
  4. PREMPRO [Concomitant]
     Dosage: 0.3-1.5
  5. REQUIP [Concomitant]
     Dosage: 0.25 MG, UNK
  6. GABAPENTIN [Concomitant]
     Dosage: 100 MG, UNK

REACTIONS (1)
  - Trigger finger [Unknown]
